FAERS Safety Report 11809926 (Version 1)
Quarter: 2015Q4

REPORT INFORMATION
  Report Type: Report from Study
  Country: FR (occurrence: FR)
  Receive Date: 20151208
  Receipt Date: 20151208
  Transmission Date: 20160305
  Serious: Yes (Other)
  Sender: FDA-Public Use
  Company Number: FR-BRISTOL-MYERS SQUIBB COMPANY-12882957

PATIENT
  Age: 28 Year
  Sex: Female
  Weight: 57 kg

DRUGS (8)
  1. TENOFOVIR DISOPROXIL FUMARATE. [Suspect]
     Active Substance: TENOFOVIR DISOPROXIL FUMARATE
     Indication: HIV INFECTION
     Dosage: 300 MG, QD
     Route: 065
     Dates: start: 20041018, end: 20050225
  2. TARDYFERON [Concomitant]
     Active Substance: FERROUS SULFATE\FOLIC ACID
     Indication: ANAEMIA
     Dosage: 160 MG, QD
     Route: 065
     Dates: start: 20040720
  3. RHINOFLUIMUCIL [Concomitant]
     Active Substance: ACETYLCYSTEINE\BENZALKONIUM CHLORIDE\TUAMINOHEPTANE SULFATE
     Indication: VIRAL INFECTION
     Dosage: UNK
     Route: 065
     Dates: start: 20050213, end: 20050219
  4. CLAMOXYL [Concomitant]
     Active Substance: AMOXICILLIN\CLAVULANIC ACID
     Indication: PNEUMONIA
     Dosage: 3000 MG, QD
     Route: 065
     Dates: start: 20050216
  5. DIDANOSINE. [Suspect]
     Active Substance: DIDANOSINE
     Indication: HIV INFECTION
     Dosage: 250 MG, QD
     Route: 065
     Dates: start: 20041018, end: 20050225
  6. PARACETAMOL [Concomitant]
     Active Substance: ACETAMINOPHEN
     Indication: VIRAL INFECTION
     Dosage: 1500 MG, QD
     Route: 065
     Dates: start: 20050213, end: 20050219
  7. CONTRACEPTIVE [Concomitant]
     Active Substance: UNSPECIFIED INGREDIENT
     Indication: CONTRACEPTION
     Dosage: UNK
     Route: 048
     Dates: start: 20041214, end: 20050221
  8. EFAVIRENZ [Suspect]
     Active Substance: EFAVIRENZ
     Indication: HIV INFECTION
     Dosage: 600 MG, QD
     Route: 065
     Dates: start: 20041018, end: 20050225

REACTIONS (3)
  - Metrorrhagia [Unknown]
  - Abortion spontaneous [Recovered/Resolved]
  - Pregnancy on oral contraceptive [Unknown]

NARRATIVE: CASE EVENT DATE: 200502
